FAERS Safety Report 6993855-8 (Version None)
Quarter: 2010Q3

REPORT INFORMATION
  Report Type: 
  Country: None (occurrence: None)
  Receive Date: 20100917
  Receipt Date: 20070822
  Transmission Date: 20110219
  Serious: Yes (Hospitalization)
  Sender: FDA-Public Use
  Company Number: US-ASTRAZENECA-2006UW08078

PATIENT
  Age: 16553 Day
  Sex: Female
  Weight: 83.9 kg

DRUGS (5)
  1. SEROQUEL [Suspect]
     Indication: DEPRESSION
     Route: 048
     Dates: start: 20010701
  2. GLYBURIDE [Concomitant]
     Dates: start: 20051001
  3. ZOLOFT [Concomitant]
     Dosage: 150 TO 200 MG
     Dates: start: 20030319
  4. MIRAPEX [Concomitant]
     Indication: RESTLESS LEGS SYNDROME
     Dosage: 0.125 MG 2 TABLET EVERY NIGHT
     Route: 048
     Dates: start: 20060102
  5. LOVASTATIN [Concomitant]

REACTIONS (3)
  - DIABETES MELLITUS [None]
  - DIABETES MELLITUS INADEQUATE CONTROL [None]
  - HYPERGLYCAEMIA [None]
